FAERS Safety Report 7157263-1 (Version None)
Quarter: 2010Q4

REPORT INFORMATION
  Report Type: 
  Country: None (occurrence: None)
  Receive Date: 20101130
  Receipt Date: 20101123
  Transmission Date: 20110411
  Serious: Yes (Hospitalization)
  Sender: FDA-Public Use
  Company Number: CHL-AE-2010-TAM-001

PATIENT
  Age: 54 Year
  Sex: Male
  Weight: 80 kg

DRUGS (10)
  1. TAMSULOSIN 0.4MG (MFR UNKNOWN) [Suspect]
     Indication: BENIGN PROSTATIC HYPERPLASIA
     Dosage: 0.4MG, QN
  2. CEFAZOLIN [Concomitant]
  3. SODIUM THIOPENTONE [Concomitant]
  4. PETHIDINE [Concomitant]
  5. ATRACURIUM [Concomitant]
  6. VENTILATION [Concomitant]
  7. EPHEDRINE [Concomitant]
  8. PHENYLEPHRINE [Concomitant]
  9. GLYCOPYRROLATE [Concomitant]
  10. NEOSTIGMINE [Interacting]

REACTIONS (6)
  - ANAESTHETIC COMPLICATION [None]
  - BLOOD PRESSURE INCREASED [None]
  - HEART RATE INCREASED [None]
  - HYPOTENSION [None]
  - HYPOVOLAEMIA [None]
  - UNWANTED AWARENESS DURING ANAESTHESIA [None]
